FAERS Safety Report 7624249-X (Version None)
Quarter: 2011Q3

REPORT INFORMATION
  Report Type: 
  Country: None (occurrence: None)
  Receive Date: 20110712
  Receipt Date: 20110628
  Transmission Date: 20111222
  Serious: Yes (Hospitalization)
  Sender: FDA-Public Use
  Company Number: 1000021661

PATIENT
  Age: 84 Year
  Sex: Male

DRUGS (12)
  1. DILTAHEXAL (DILTIAZEM HYDROCHLORIDE)(DILTIAZEM HYDROCHLORIDE) [Concomitant]
  2. ATACAND (CANDESARTAN CILEXETIL)(CANDESARTAN CILEXETIL)(CANDESARTAN CIL [Concomitant]
  3. ACETYLCYSTEINE (ACETYLCYSTEINE) (ACETYLCYSTEINE) [Concomitant]
  4. FORADIL (FORMOTEROL) (FORMOTEROL FUMARATE) (FORMOTEROL FUMARATE) [Concomitant]
  5. PANTOZOL (PANTOPRAZOLE) (PANTOPRAZOLE)(PANTOPRAZOLE) [Concomitant]
  6. OXYGEN (OXYGEN) (OXYGEN) [Concomitant]
  7. ROFLUMILAST (ROFLUMILAST) (TABLETS) [Suspect]
     Indication: CHRONIC OBSTRUCTIVE PULMONARY DISEASE
     Dosage: 500 MCG,ORAL
     Dates: start: 20110215, end: 20110225
  8. TOREM (TORASEMIDE)(TORASEMIDE)(TORASEMIDE) [Concomitant]
  9. SORTIS (ATOROVASTATIN CALCIUM)(ATOROVASTATIN CALCIUM)(ATOROVASTATIN CA [Concomitant]
  10. BUDESONIDE [Concomitant]
  11. ACETYLSALICYLIC ACID SRT [Concomitant]
  12. SPIRIVA (TIOTROPIUM BROMIDE)(TIOTROPIUM BROMIDE) [Concomitant]

REACTIONS (7)
  - DYSPNOEA [None]
  - NAUSEA [None]
  - CONDITION AGGRAVATED [None]
  - MELAENA [None]
  - GENERAL PHYSICAL HEALTH DETERIORATION [None]
  - CHRONIC OBSTRUCTIVE PULMONARY DISEASE [None]
  - OEDEMA PERIPHERAL [None]
